FAERS Safety Report 7466027-0 (Version None)
Quarter: 2011Q2

REPORT INFORMATION
  Report Type: 
  Country: None (occurrence: None)
  Receive Date: 20110509
  Receipt Date: 20100916
  Transmission Date: 20111010
  Serious: Yes (Hospitalization, Other)
  Sender: FDA-Public Use
  Company Number: US-ALEXION-A201000627

PATIENT
  Sex: Female

DRUGS (5)
  1. METHYLPREDNISOLONE [Concomitant]
     Indication: AUTOLOGOUS BONE MARROW TRANSPLANTATION THERAPY
     Dosage: 60 MG, BID (Q 12H) X 8 DOSES
     Route: 042
     Dates: end: 20100602
  2. SOLIRIS [Suspect]
     Dosage: 900 MG, Q2W
     Route: 042
     Dates: start: 20100525
  3. SOLIRIS [Suspect]
     Indication: APLASTIC ANAEMIA
     Dosage: UNK
     Route: 042
     Dates: start: 20100201, end: 20100101
  4. NEORAL [Suspect]
     Indication: APLASTIC ANAEMIA
     Dosage: 200 MG, BID
     Route: 048
     Dates: start: 20100517, end: 20100602
  5. ATGAM [Concomitant]
     Indication: APLASTIC ANAEMIA
     Dosage: 3200 MG, QD
     Route: 042
     Dates: start: 20100517, end: 20100501

REACTIONS (8)
  - HYPERAESTHESIA [None]
  - GAIT DISTURBANCE [None]
  - PLATELET COUNT DECREASED [None]
  - DYSSTASIA [None]
  - SPINAL DEFORMITY [None]
  - POST TRANSPLANT DISTAL LIMB SYNDROME [None]
  - SERUM SICKNESS [None]
  - PAIN IN EXTREMITY [None]
